FAERS Safety Report 8282526 (Version 3)
Quarter: 2020Q3

REPORT INFORMATION
  Report Type: Spontaneous
  Country: PT (occurrence: PT)
  Receive Date: 20111209
  Receipt Date: 20200709
  Transmission Date: 20201103
  Serious: Yes (Hospitalization)
  Sender: FDA-Public Use
  Company Number: PHHY2011PT105717

PATIENT
  Age: 32 Year
  Sex: Male

DRUGS (8)
  1. LEVOMEPROMAZINE [Concomitant]
     Active Substance: LEVOMEPROMAZINE
     Indication: PRODUCT USED FOR UNKNOWN INDICATION
     Dosage: UNK
     Route: 065
  2. OLANZAPINE. [Concomitant]
     Active Substance: OLANZAPINE
     Indication: PRODUCT USED FOR UNKNOWN INDICATION
     Dosage: UNK
     Route: 065
  3. HALOPERIDOL. [Suspect]
     Active Substance: HALOPERIDOL
     Indication: BEHAVIOUR DISORDER
     Dosage: 1 MG, UNK
     Route: 065
  4. HALOPERIDOL. [Suspect]
     Active Substance: HALOPERIDOL
     Indication: SLEEP DISORDER
     Dosage: 150 MG
     Route: 030
  5. HALOPERIDOL. [Suspect]
     Active Substance: HALOPERIDOL
     Dosage: 100 UNK
     Route: 030
  6. HALOPERIDOL. [Suspect]
     Active Substance: HALOPERIDOL
     Indication: AGGRESSION
     Dosage: 10 MG, UNK
     Route: 030
  7. OXAZEPAM. [Concomitant]
     Active Substance: OXAZEPAM
     Indication: PRODUCT USED FOR UNKNOWN INDICATION
     Dosage: UNK
     Route: 065
  8. QUETIAPINE. [Concomitant]
     Active Substance: QUETIAPINE
     Indication: PRODUCT USED FOR UNKNOWN INDICATION
     Dosage: UNK
     Route: 065

REACTIONS (24)
  - Sleep disorder [Recovering/Resolving]
  - Muscle rigidity [Recovering/Resolving]
  - Diarrhoea haemorrhagic [Recovered/Resolved]
  - Haematochezia [Recovering/Resolving]
  - Transaminases increased [Recovering/Resolving]
  - Pyrexia [Recovering/Resolving]
  - Tachycardia [Recovering/Resolving]
  - Hyperhidrosis [Recovering/Resolving]
  - Colitis ischaemic [Recovered/Resolved]
  - Cognitive disorder [Recovering/Resolving]
  - Apathy [Recovering/Resolving]
  - Mutism [Unknown]
  - Aggression [Recovering/Resolving]
  - Tachypnoea [Recovering/Resolving]
  - Abdominal distension [Recovered/Resolved]
  - Abdominal pain [Recovered/Resolved]
  - Tremor [Recovering/Resolving]
  - Condition aggravated [Recovering/Resolving]
  - Hypotension [Recovering/Resolving]
  - Neuroleptic malignant syndrome [Recovered/Resolved]
  - Psychomotor hyperactivity [Recovering/Resolving]
  - Dyskinesia [Recovering/Resolving]
  - Abnormal behaviour [Recovering/Resolving]
  - Blood creatine phosphokinase increased [Recovering/Resolving]
